FAERS Safety Report 7039894-2 (Version None)
Quarter: 2010Q4

REPORT INFORMATION
  Report Type: 
  Country: None (occurrence: None)
  Receive Date: 20101012
  Receipt Date: 20100930
  Transmission Date: 20110411
  Serious: Yes (Other)
  Sender: FDA-Public Use
  Company Number: JP-PFIZER INC-2010128119

PATIENT
  Age: 73 Year
  Sex: Male
  Weight: 63 kg

DRUGS (4)
  1. CAMPTOSAR [Suspect]
     Indication: COLORECTAL CANCER
     Dosage: 243 MG, (150MG/M2)
     Route: 041
     Dates: start: 20100817, end: 20100817
  2. CALCIUM LEVOFOLINATE [Concomitant]
     Indication: COLORECTAL CANCER
     Dosage: 324 MG, (200 MG/M2)
     Route: 041
     Dates: start: 20100817, end: 20100817
  3. FLUOROURACIL [Concomitant]
     Indication: COLORECTAL CANCER
     Dosage: 648 MG, (400 MG/M2)
     Route: 040
     Dates: start: 20100817, end: 20100817
  4. FLUOROURACIL [Concomitant]
     Dosage: 3888 MG, (2400 MG/M2/D1-2)
     Route: 041
     Dates: start: 20100817, end: 20100817

REACTIONS (2)
  - DUODENAL ULCER HAEMORRHAGE [None]
  - INTESTINAL OBSTRUCTION [None]
